FAERS Safety Report 16118491 (Version 2)
Quarter: 2019Q2

REPORT INFORMATION
  Report Type: Spontaneous
  Country: US (occurrence: US)
  Receive Date: 20190326
  Receipt Date: 20190423
  Transmission Date: 20190711
  Serious: Yes (Hospitalization)
  Sender: FDA-Public Use
  Company Number: US-ASTRAZENECA-2019SE45048

PATIENT
  Age: 887 Month
  Sex: Female
  Weight: 87.1 kg

DRUGS (10)
  1. OCEAN SALINE NASAL SPRAY [Concomitant]
     Active Substance: SODIUM CHLORIDE
     Indication: NASAL CONGESTION
     Dosage: AS REQUIRED
     Route: 045
  2. RANITIDINE. [Concomitant]
     Active Substance: RANITIDINE
     Indication: ABDOMINAL DISCOMFORT
     Route: 048
     Dates: start: 2013
  3. TYLENOL [Concomitant]
     Active Substance: ACETAMINOPHEN
     Indication: PAIN
     Dosage: 1000.0MG AS REQUIRED
     Route: 048
  4. CETIRIZINE [Concomitant]
     Active Substance: CETIRIZINE HYDROCHLORIDE
     Indication: ASTHMA
     Route: 048
  5. SPIRIVA [Concomitant]
     Active Substance: TIOTROPIUM BROMIDE MONOHYDRATE
     Indication: ASTHMA
     Dosage: DAILY
     Route: 055
  6. SINGULAIR MONTELUKAST [Concomitant]
     Indication: ASTHMA
     Route: 048
  7. FLONASE [Concomitant]
     Active Substance: FLUTICASONE PROPIONATE
     Indication: SINUSITIS
     Dosage: 50 MCG ONE SPRAY IN EACH NOSTRIL DAILY
     Route: 045
     Dates: start: 2013
  8. PROAIR HFA [Concomitant]
     Active Substance: ALBUTEROL SULFATE
     Indication: ASTHMA
     Dosage: 90.0UG AS REQUIRED
     Route: 055
  9. SUDAFED [Concomitant]
     Active Substance: PSEUDOEPHEDRINE HYDROCHLORIDE
     Indication: UPPER-AIRWAY COUGH SYNDROME
     Dosage: 30.0MG AS REQUIRED
     Route: 048
  10. SYMBICORT [Suspect]
     Active Substance: BUDESONIDE\FORMOTEROL FUMARATE DIHYDRATE
     Indication: ASTHMA
     Dosage: 80/4.5 MCG, TWO INHALATIONS, TWICE DAILY
     Route: 055
     Dates: start: 2016

REACTIONS (11)
  - Feeling abnormal [Not Recovered/Not Resolved]
  - Sinusitis [Recovered/Resolved]
  - Back pain [Unknown]
  - Upper respiratory tract congestion [Not Recovered/Not Resolved]
  - Malaise [Unknown]
  - Back injury [Not Recovered/Not Resolved]
  - Dyspnoea [Not Recovered/Not Resolved]
  - Fatigue [Not Recovered/Not Resolved]
  - Product dose omission [Not Recovered/Not Resolved]
  - Asthma [Recovered/Resolved]
  - Chest discomfort [Recovered/Resolved]

NARRATIVE: CASE EVENT DATE: 201801
